FAERS Safety Report 6576577-7 (Version None)
Quarter: 2010Q1

REPORT INFORMATION
  Report Type: 
  Country: None (occurrence: None)
  Receive Date: 20100210
  Receipt Date: 20100201
  Transmission Date: 20100710
  Serious: Yes (Other)
  Sender: FDA-Public Use
  Company Number: US-ASTRAZENECA-2010SE04389

PATIENT
  Age: 64 Year
  Sex: Female

DRUGS (14)
  1. PRILOSEC [Suspect]
     Indication: DYSPEPSIA
     Route: 048
     Dates: start: 20090601
  2. PLAVIX [Interacting]
     Indication: PERIPHERAL ARTERIAL OCCLUSIVE DISEASE
     Route: 048
     Dates: start: 20070101
  3. LISINOPRIL [Concomitant]
     Dosage: 2 TABLET AT AM AND 1 TABLET PM
     Route: 048
  4. AMLODIPINE [Concomitant]
     Indication: BLOOD PRESSURE
  5. PREDNISONE [Concomitant]
     Indication: POLYMYALGIA RHEUMATICA
  6. VITAMIN D [Concomitant]
  7. FISH OIL [Concomitant]
  8. CALCIUM [Concomitant]
  9. CHONDROITIN SULFATE [Concomitant]
  10. ALL OTHER THERAPEUTIC PRODUCTS [Concomitant]
  11. PREV MEDS [Concomitant]
  12. LEVOTHYROXINE SODIUM [Concomitant]
     Indication: BASEDOW'S DISEASE
  13. HYDROXYCHLOROQUINE SULFATE [Concomitant]
     Indication: POLYMYALGIA RHEUMATICA
  14. OSTEO-FLEX [Concomitant]

REACTIONS (5)
  - DYSPEPSIA [None]
  - INHIBITORY DRUG INTERACTION [None]
  - PAIN IN EXTREMITY [None]
  - PERIPHERAL ARTERIAL OCCLUSIVE DISEASE [None]
  - POLYMYALGIA RHEUMATICA [None]
